FAERS Safety Report 7361806-2 (Version None)
Quarter: 2011Q1

REPORT INFORMATION
  Report Type: 
  Country: None (occurrence: None)
  Receive Date: 20110318
  Receipt Date: 20110313
  Transmission Date: 20110831
  Serious: Yes (Hospitalization)
  Sender: FDA-Public Use
  Company Number: JP-ELI_LILLY_AND_COMPANY-JP201103001685

PATIENT
  Age: 69 Year
  Sex: Female

DRUGS (1)
  1. FORTEO [Suspect]
     Indication: COMPRESSION FRACTURE
     Dosage: UNK, UNK
     Route: 058
     Dates: start: 20110227, end: 20110308

REACTIONS (2)
  - HAEMORRHOIDS [None]
  - OEDEMA PERIPHERAL [None]
